FAERS Safety Report 13794963 (Version 2)
Quarter: 2017Q3

REPORT INFORMATION
  Report Type: Spontaneous
  Country: PL (occurrence: PL)
  Receive Date: 20170726
  Receipt Date: 20170922
  Transmission Date: 20171127
  Serious: Yes (Hospitalization)
  Sender: FDA-Public Use
  Company Number: PL-NOVOPROD-554900

PATIENT
  Age: 46 Year
  Sex: Male
  Weight: 82 kg

DRUGS (3)
  1. INSULATARD NPH HUMAN [Suspect]
     Active Substance: INSULIN HUMAN
     Indication: TYPE 1 DIABETES MELLITUS
     Dosage: 10-12 UNITS IN THE EVENING
     Route: 065
  2. NOVORAPID [Concomitant]
     Active Substance: INSULIN ASPART
     Indication: TYPE 1 DIABETES MELLITUS
     Dosage: 8-12 UNITS THREE TIMES A DAY
     Route: 065
  3. POLHUMIN R [Suspect]
     Active Substance: INSULIN HUMAN
     Indication: TYPE 1 DIABETES MELLITUS
     Dosage: UNK
     Route: 065

REACTIONS (6)
  - Diabetic metabolic decompensation [Unknown]
  - Expired product administered [Unknown]
  - Chronic hepatitis C [Unknown]
  - Gastritis erosive [Unknown]
  - Hyperglycaemia [Unknown]
  - Inflammation [Unknown]

NARRATIVE: CASE EVENT DATE: 201612
